FAERS Safety Report 15981578 (Version 1)
Quarter: 2019Q1

REPORT INFORMATION
  Report Type: Spontaneous
  Country: US (occurrence: US)
  Receive Date: 20190219
  Receipt Date: 20190219
  Transmission Date: 20190418
  Serious: Yes (Disabling)
  Sender: FDA-Public Use
  Company Number: None

PATIENT
  Age: 54 Year
  Sex: Female
  Weight: 60.9 kg

DRUGS (5)
  1. CIPROFOXACIN HCL [Suspect]
     Active Substance: CIPROFLOXACIN HYDROCHLORIDE
     Indication: POSTOPERATIVE CARE
     Dosage: ?          QUANTITY:1 CAPSULE(S);?
     Route: 048
     Dates: start: 20190112, end: 20190219
  2. MOTRIN [Concomitant]
     Active Substance: IBUPROFEN
  3. CLINDAMYCIN. [Concomitant]
     Active Substance: CLINDAMYCIN
  4. SYNTHROID [Concomitant]
     Active Substance: LEVOTHYROXINE SODIUM
  5. CIPROFOXACIN HCL [Suspect]
     Active Substance: CIPROFLOXACIN HYDROCHLORIDE
     Indication: ANTIBIOTIC PROPHYLAXIS
     Dosage: ?          QUANTITY:1 CAPSULE(S);?
     Route: 048
     Dates: start: 20190112, end: 20190219

REACTIONS (10)
  - Back pain [None]
  - Bedridden [None]
  - Headache [None]
  - Fatigue [None]
  - Vomiting [None]
  - Arthralgia [None]
  - Tendonitis [None]
  - Epicondylitis [None]
  - Dysuria [None]
  - Pain [None]

NARRATIVE: CASE EVENT DATE: 20190215
